FAERS Safety Report 12430839 (Version 1)
Quarter: 2016Q2

REPORT INFORMATION
  Report Type: Spontaneous
  Country: US (occurrence: US)
  Receive Date: 20160602
  Receipt Date: 20160602
  Transmission Date: 20160815
  Serious: Yes (Other)
  Sender: FDA-Public Use
  Company Number: US-TEVA-662986USA

PATIENT
  Sex: Female

DRUGS (7)
  1. NAPROXEN. [Concomitant]
     Active Substance: NAPROXEN
  2. LEVOTHYROXINE. [Concomitant]
     Active Substance: LEVOTHYROXINE
  3. VITAMIN C [Concomitant]
     Active Substance: ASCORBIC ACID
  4. COPAXONE [Suspect]
     Active Substance: GLATIRAMER ACETATE
     Indication: MULTIPLE SCLEROSIS
     Route: 058
     Dates: start: 201507
  5. VITAMIN B5 [Concomitant]
     Active Substance: PANTOTHENIC ACID
  6. BLACK COHOSH [Concomitant]
     Active Substance: BLACK COHOSH
  7. ESTROPITATE [Concomitant]
     Active Substance: ESTROPIPATE

REACTIONS (1)
  - Multiple sclerosis relapse [Unknown]

NARRATIVE: CASE EVENT DATE: 2016
